FAERS Safety Report 9178327 (Version 1)
Quarter: 2013Q1

REPORT INFORMATION
  Report Type: Spontaneous
  Country: ES (occurrence: ES)
  Receive Date: 20130321
  Receipt Date: 20130321
  Transmission Date: 20140127
  Serious: Yes (Hospitalization)
  Sender: FDA-Public Use
  Company Number: ES-BAXTER-2013BAX008726

PATIENT
  Age: 60 Year
  Sex: Male

DRUGS (3)
  1. GENOXAL [Suspect]
     Indication: LUNG NEOPLASM MALIGNANT
     Route: 042
     Dates: start: 20121102, end: 20121102
  2. ADRIAMICINA [Interacting]
     Indication: LUNG NEOPLASM MALIGNANT
     Route: 042
     Dates: start: 20121102, end: 20121102
  3. VINCRISTINE [Interacting]
     Indication: LUNG NEOPLASM MALIGNANT
     Route: 042
     Dates: start: 20121102, end: 20121102

REACTIONS (4)
  - Febrile neutropenia [Recovered/Resolved]
  - Thrombocytopenia [Recovered/Resolved]
  - Anaemia [Recovered/Resolved]
  - Septic shock [Recovered/Resolved]
